FAERS Safety Report 7267392-X (Version None)
Quarter: 2011Q1

REPORT INFORMATION
  Report Type: 
  Country: None (occurrence: None)
  Receive Date: 20110201
  Receipt Date: 20101123
  Transmission Date: 20110831
  Serious: No
  Sender: FDA-Public Use
  Company Number: A0882948A

PATIENT
  Age: 40 Year
  Sex: Female

DRUGS (8)
  1. ALBUTEROL [Concomitant]
     Route: 055
  2. TEGRETOL [Concomitant]
  3. ARIXTRA [Suspect]
     Indication: DEEP VEIN THROMBOSIS
     Dosage: 7.5MG PER DAY
     Route: 058
     Dates: start: 20100201
  4. DIAZEPAM [Concomitant]
  5. DICLOFENAC [Concomitant]
  6. ALBUTEROL INHALER [Concomitant]
  7. IPRATROPIUM SOLUTION [Concomitant]
     Route: 055
  8. IMIPRAMINE [Concomitant]

REACTIONS (4)
  - DRUG ADMINISTRATION ERROR [None]
  - PRODUCT QUALITY ISSUE [None]
  - SYRINGE ISSUE [None]
  - WEIGHT INCREASED [None]
